FAERS Safety Report 4296668-3 (Version None)
Quarter: 2004Q1

REPORT INFORMATION
  Report Type: 
  Country: None (occurrence: None)
  Receive Date: 20040126
  Receipt Date: 20030924
  Transmission Date: 20041129
  Serious: No
  Sender: FDA-Public Use
  Company Number: USA030843380

PATIENT
  Age: 9 Year
  Sex: Male
  Weight: 27 kg

DRUGS (2)
  1. STRATTERA [Suspect]
     Indication: ATTENTION DEFICIT/HYPERACTIVITY DISORDER
     Dosage: 40 MG/DAY
     Dates: start: 20030501
  2. VITAMIN NOS [Concomitant]

REACTIONS (5)
  - DECREASED APPETITE [None]
  - DRY MOUTH [None]
  - HEADACHE [None]
  - VISION BLURRED [None]
  - WEIGHT DECREASED [None]
